FAERS Safety Report 25501889 (Version 3)
Quarter: 2025Q3

REPORT INFORMATION
  Report Type: Spontaneous
  Country: US (occurrence: US)
  Receive Date: 20250702
  Receipt Date: 20250720
  Transmission Date: 20251020
  Serious: No
  Sender: VIIV
  Company Number: US-VIIV HEALTHCARE- US2025081739

PATIENT
  Sex: Male
  Weight: 74 kg

DRUGS (1)
  1. JULUCA [Suspect]
     Active Substance: DOLUTEGRAVIR SODIUM\RILPIVIRINE HYDROCHLORIDE
     Indication: HIV infection
     Dosage: UNK UNK, QD 50-25 MG DAILY
     Dates: start: 202307

REACTIONS (1)
  - Pathogen resistance [Unknown]
